FAERS Safety Report 20466393 (Version 2)
Quarter: 2022Q1

REPORT INFORMATION
  Report Type: Report from Study
  Country: US (occurrence: US)
  Receive Date: 20220213
  Receipt Date: 20220219
  Transmission Date: 20220424
  Serious: Yes (Death, Hospitalization, Other)
  Sender: FDA-Public Use
  Company Number: US-NOVARTISPH-NVSC2022US030113

PATIENT
  Age: 53 Year
  Sex: Female

DRUGS (5)
  1. KESIMPTA [Suspect]
     Active Substance: OFATUMUMAB
     Indication: Relapsing multiple sclerosis
     Dosage: 20 MG, QMO (ONCE MONTHLY AFTER COMPLETION OF LOADING DOSES)
     Route: 058
     Dates: start: 202110, end: 20220107
  2. AMLODIPINE [Concomitant]
     Active Substance: AMLODIPINE BESYLATE
     Indication: Hypertension
     Dosage: UNK
     Route: 065
  3. METFORMIN [Concomitant]
     Active Substance: METFORMIN HYDROCHLORIDE
     Indication: Diabetes mellitus
     Dosage: UNK
     Route: 065
  4. GLIPIZIDE [Concomitant]
     Active Substance: GLIPIZIDE
     Indication: Diabetes mellitus
     Dosage: UNK
     Route: 065
  5. ASPIRIN [Concomitant]
     Active Substance: ASPIRIN
     Indication: Diabetes mellitus
     Dosage: UNK
     Route: 065

REACTIONS (10)
  - COVID-19 [Fatal]
  - Pyrexia [Fatal]
  - Pain [Fatal]
  - Fatigue [Fatal]
  - Pneumonia [Fatal]
  - Lymphopenia [Fatal]
  - Deep vein thrombosis [Fatal]
  - Respiratory failure [Fatal]
  - Septic shock [Fatal]
  - Multiple sclerosis relapse [Unknown]

NARRATIVE: CASE EVENT DATE: 20220115
